FAERS Safety Report 15012716 (Version 1)
Quarter: 2018Q2

REPORT INFORMATION
  Report Type: Report from Study
  Country: None (occurrence: ES)
  Receive Date: 20180614
  Receipt Date: 20180614
  Transmission Date: 20180711
  Serious: Yes (Hospitalization)
  Sender: FDA-Public Use
  Company Number: ES-BAUSCH-BL-2018-016600

PATIENT
  Age: 50 Year
  Sex: Female

DRUGS (9)
  1. AGOMELATINA [Concomitant]
     Indication: PRODUCT USED FOR UNKNOWN INDICATION
     Dosage: 0-0-1
     Route: 048
  2. LYRICA [Concomitant]
     Active Substance: PREGABALIN
     Indication: PRODUCT USED FOR UNKNOWN INDICATION
     Dosage: FOR 12 HOURS, 100 CAPSULES, HARD CAPSULE?1-0-1
     Route: 048
     Dates: start: 20161209
  3. QUETIAPINA [Suspect]
     Active Substance: QUETIAPINE
     Indication: SUICIDE ATTEMPT
     Dosage: 25MG, 69 TABS, IN TOTAL
     Route: 048
     Dates: start: 20170919, end: 20170919
  4. LORAZEPAM. [Suspect]
     Active Substance: LORAZEPAM
     Indication: SUICIDE ATTEMPT
     Dosage: 25 CPS DE 1 MG, 25 MG IN TOTAL
     Route: 048
     Dates: start: 20170919, end: 20170919
  5. LORMETAZEPAM [Suspect]
     Active Substance: LORMETAZEPAM
     Indication: SUICIDE ATTEMPT
     Dosage: 25 COMP DE 2 MG, 50 MG IN TOTAL
     Route: 065
     Dates: start: 20170919, end: 20170919
  6. LISINOPRIL/HIDROCLOROTIAZIDA [Concomitant]
     Indication: HYPERTENSION
     Dosage: 20/12.5 MG, EFG TABLETS, 28 TABS?1-0-0
     Route: 048
     Dates: start: 20070101
  7. VENLAFAXINA [Concomitant]
     Active Substance: VENLAFAXINE HYDROCHLORIDE
     Indication: PRODUCT USED FOR UNKNOWN INDICATION
     Route: 048
     Dates: start: 20161209
  8. AIRFLUSAL FORSPIRO [Concomitant]
     Active Substance: FLUTICASONE PROPIONATE\SALMETEROL XINAFOATE
     Indication: PRODUCT USED FOR UNKNOWN INDICATION
     Dosage: 1-0-1, 50 MICROGRAM/250 MICROGRAM, INHALATION POWDER FOR INHALATION?(UNIDOSES), 1 X 60 DOSES
     Route: 055
     Dates: start: 20130101
  9. EKLIRA GENUAIR [Concomitant]
     Active Substance: ACLIDINIUM BROMIDE
     Indication: PRODUCT USED FOR UNKNOWN INDICATION
     Dosage: 1-0-1, POWDER FOR INHALATION,  1 INHALER
     Route: 055
     Dates: start: 20140212

REACTIONS (2)
  - Depressed level of consciousness [Recovered/Resolved]
  - Hepatitis [Recovered/Resolved]

NARRATIVE: CASE EVENT DATE: 20170919
